FAERS Safety Report 8450561-0 (Version None)
Quarter: 2012Q2

REPORT INFORMATION
  Report Type: 
  Country: None (occurrence: None)
  Receive Date: 20120601
  Receipt Date: 20120529
  Transmission Date: 20120825
  Serious: Yes (Other)
  Sender: FDA-Public Use
  Company Number: 2012031764

PATIENT
  Age: 58 Year
  Sex: Female

DRUGS (12)
  1. VIVAGLOBIN [Suspect]
  2. VIVAGLOBIN [Suspect]
     Indication: IMMUNODEFICIENCY
     Dosage: 30 ML, AT RATE OF 1ML/MINUTE
     Route: 058
     Dates: start: 20110525
  3. VIVAGLOBIN [Suspect]
     Indication: HYPOGAMMAGLOBULINAEMIA
     Dosage: 30 ML, AT RATE OF 1ML/MINUTE
     Route: 058
     Dates: start: 20110525
  4. VIVAGLOBIN [Suspect]
     Indication: IMMUNODEFICIENCY
     Dosage: 30 ML, AT RATE OF 1ML/MINUTE
     Route: 058
     Dates: start: 20120303, end: 20120303
  5. VIVAGLOBIN [Suspect]
     Indication: HYPOGAMMAGLOBULINAEMIA
     Dosage: 30 ML, AT RATE OF 1ML/MINUTE
     Route: 058
     Dates: start: 20120303, end: 20120303
  6. VIVAGLOBIN [Suspect]
  7. VIVAGLOBIN [Suspect]
  8. APO-HYDROXYQUINE (HYDROXYCHLOROQUINE SULFATE) [Concomitant]
  9. CALCIUM CARBONATE [Concomitant]
  10. VIVAGLOBIN [Suspect]
  11. VIVAGLOBIN [Suspect]
  12. VITAMIN D [Concomitant]

REACTIONS (5)
  - PRODUCT CONTAMINATION MICROBIAL [None]
  - BURNING SENSATION [None]
  - BACK PAIN [None]
  - HYPERSENSITIVITY [None]
  - DYSPNOEA [None]
